FAERS Safety Report 7778483-9 (Version None)
Quarter: 2011Q3

REPORT INFORMATION
  Report Type: 
  Country: None (occurrence: None)
  Receive Date: 20110926
  Receipt Date: 20110914
  Transmission Date: 20111222
  Serious: Yes (Hospitalization)
  Sender: FDA-Public Use
  Company Number: JP-AMGEN-KDC438006

PATIENT
  Age: 72 Year
  Sex: Male
  Weight: 80 kg

DRUGS (23)
  1. OXALIPLATIN [Suspect]
     Indication: COLORECTAL CANCER
     Dosage: 100 MG, Q2WK
     Route: 041
     Dates: start: 20100817, end: 20110607
  2. ALOXI [Concomitant]
     Route: 042
  3. LISINOPRIL [Concomitant]
     Route: 048
  4. FAMOTIDINE [Concomitant]
     Route: 048
  5. BIO THREE [Concomitant]
     Route: 048
  6. LEUCOVORIN CALCIUM [Concomitant]
     Indication: COLORECTAL CANCER
     Dosage: 300 MG, Q2WK
     Route: 041
     Dates: start: 20100817, end: 20110607
  7. IRINOTECAN HCL [Concomitant]
     Indication: COLORECTAL CANCER
     Route: 041
     Dates: start: 20110621
  8. DECADRON [Concomitant]
  9. PANITUMUMAB [Suspect]
     Indication: COLORECTAL CANCER
     Dosage: 6 MG/KG, Q2WK
     Route: 041
     Dates: start: 20100817, end: 20100831
  10. PANITUMUMAB [Suspect]
     Dosage: 4.8 MG/KG, Q2WK
     Route: 041
     Dates: start: 20100914, end: 20101214
  11. FLUOROURACIL [Suspect]
     Indication: COLORECTAL CANCER
     Dosage: 500 MG, Q2WK
     Route: 040
     Dates: start: 20100817, end: 20110607
  12. FLUOROURACIL [Suspect]
     Dosage: 4000 MG, Q2WK
     Route: 041
     Dates: start: 20100817, end: 20110607
  13. LEUCOVORIN CALCIUM [Concomitant]
     Dosage: 250 MG, Q2WK
     Route: 041
     Dates: start: 20110621
  14. CONIEL [Concomitant]
     Route: 048
  15. PANITUMUMAB [Suspect]
     Dosage: 4.8 MG/KG, Q2WK
     Route: 041
     Dates: start: 20100112, end: 20101214
  16. CORTICOSTEROIDS [Concomitant]
     Indication: PROPHYLAXIS
     Route: 065
  17. PRIMPERAN TAB [Concomitant]
     Route: 048
  18. EMEND [Concomitant]
     Route: 048
  19. MUCOSTA [Concomitant]
     Route: 048
  20. PURSENNID [Concomitant]
     Route: 048
  21. FLUOROURACIL [Suspect]
     Dosage: 500 MG, Q2WK
     Route: 040
     Dates: start: 20110621
  22. FLUOROURACIL [Suspect]
     Dosage: 3000 MG, Q2WK
     Route: 041
     Dates: start: 20110621
  23. LIPITOR [Concomitant]
     Route: 048

REACTIONS (4)
  - STOMATITIS [None]
  - NEUTROPHIL COUNT DECREASED [None]
  - DERMATITIS ACNEIFORM [None]
  - PARONYCHIA [None]
